FAERS Safety Report 6800576-0 (Version None)
Quarter: 2010Q2

REPORT INFORMATION
  Report Type: 
  Country: None (occurrence: None)
  Receive Date: 20100625
  Receipt Date: 20100625
  Transmission Date: 20101027
  Serious: Yes (Hospitalization)
  Sender: FDA-Public Use
  Company Number: None

PATIENT
  Sex: Female
  Weight: 54.9 kg

DRUGS (1)
  1. PEG-INTRON [Suspect]
     Dosage: 25 MCG

REACTIONS (3)
  - DERMATITIS CONTACT [None]
  - IMPAIRED HEALING [None]
  - WOUND INFECTION STAPHYLOCOCCAL [None]
